FAERS Safety Report 7787505-0 (Version None)
Quarter: 2011Q3

REPORT INFORMATION
  Report Type: 
  Country: None (occurrence: None)
  Receive Date: 20110929
  Receipt Date: 20110920
  Transmission Date: 20111222
  Serious: Yes (Hospitalization, Other)
  Sender: FDA-Public Use
  Company Number: US-ASTRAZENECA-2010SE51860

PATIENT
  Age: 49 Year
  Sex: Male

DRUGS (13)
  1. NEXIUM [Suspect]
     Route: 048
  2. LISINOPRIL [Concomitant]
     Route: 048
  3. ATENOLOL [Concomitant]
  4. PRILOSEC OTC [Suspect]
     Route: 048
  5. ASPIRIN [Concomitant]
  6. PRILOSEC [Concomitant]
     Route: 048
  7. LIPITOR [Concomitant]
  8. ASPIRIN [Concomitant]
  9. COREG [Concomitant]
  10. PERCOCET [Concomitant]
     Indication: PAIN
     Dosage: 5/325 ONE TO TWO AS NEEDED
     Route: 048
  11. NITROGLYCERIN [Concomitant]
     Dosage: AS NEEDED
     Route: 060
  12. NICODERM [Concomitant]
  13. VICODIN [Concomitant]

REACTIONS (15)
  - DISTURBANCE IN ATTENTION [None]
  - DYSPEPSIA [None]
  - DRUG INEFFECTIVE [None]
  - TOBACCO ABUSE [None]
  - CORONARY ARTERY DISEASE [None]
  - ELECTRIC SHOCK [None]
  - ACUTE MYOCARDIAL INFARCTION [None]
  - PNEUMONIA [None]
  - PROCEDURAL PAIN [None]
  - DRUG DOSE OMISSION [None]
  - PAIN [None]
  - MYOCARDIAL INFARCTION [None]
  - PEPTIC ULCER PERFORATION [None]
  - HYPERLIPIDAEMIA [None]
  - HYPERTENSION [None]
